FAERS Safety Report 8473946-5 (Version None)
Quarter: 2012Q2

REPORT INFORMATION
  Report Type: 
  Country: None (occurrence: None)
  Receive Date: 20120628
  Receipt Date: 20120601
  Transmission Date: 20120825
  Serious: Yes (Other)
  Sender: FDA-Public Use
  Company Number: US-MYLANLABS-2012S1003657

PATIENT
  Age: 10 Year
  Sex: Female

DRUGS (6)
  1. CLOZAPINE [Suspect]
     Indication: BIPOLAR DISORDER
     Route: 048
     Dates: end: 20120209
  2. CLOZAPINE [Suspect]
     Route: 048
     Dates: start: 20120221
  3. CLOZAPINE [Suspect]
     Indication: PSYCHOTIC DISORDER
     Route: 048
     Dates: end: 20120209
  4. DEPAKOTE [Suspect]
     Indication: BIPOLAR DISORDER
  5. CLOZAPINE [Suspect]
     Route: 048
     Dates: start: 20120221
  6. DEPAKOTE [Suspect]
     Indication: PSYCHOTIC DISORDER

REACTIONS (1)
  - GRANULOCYTOPENIA [None]
